FAERS Safety Report 21159064 (Version 2)
Quarter: 2022Q3

REPORT INFORMATION
  Report Type: Spontaneous
  Country: PK (occurrence: PK)
  Receive Date: 20220802
  Receipt Date: 20220812
  Transmission Date: 20221026
  Serious: No
  Sender: FDA-Public Use
  Company Number: PK-NOVOPROD-942108

PATIENT
  Age: 60 Year
  Sex: Female

DRUGS (1)
  1. RYZODEG 70/30 [Suspect]
     Active Substance: INSULIN ASPART\INSULIN DEGLUDEC
     Indication: Diabetes mellitus
     Dosage: 60 IU, QD ( (30/30 BREAKFAST AND DINNER))
     Dates: start: 20210101, end: 20220722

REACTIONS (4)
  - Hypoglycaemia [Not Recovered/Not Resolved]
  - Device malfunction [Unknown]
  - Liquid product physical issue [Unknown]
  - Product storage error [Unknown]

NARRATIVE: CASE EVENT DATE: 20220722
